FAERS Safety Report 22258363 (Version 2)
Quarter: 2023Q2

REPORT INFORMATION
  Report Type: Spontaneous
  Country: US (occurrence: US)
  Receive Date: 20230427
  Receipt Date: 20230505
  Transmission Date: 20230722
  Serious: Yes (Other)
  Sender: FDA-Public Use
  Company Number: US-ORG100014127-2023000417

PATIENT
  Age: 78 Year
  Sex: Male

DRUGS (2)
  1. LYSODREN [Suspect]
     Active Substance: MITOTANE
     Indication: Adrenocortical carcinoma
     Dosage: 02 TABLETS DAILY
     Route: 048
     Dates: start: 20230407, end: 20230410
  2. LYSODREN [Suspect]
     Active Substance: MITOTANE
     Indication: Adrenocortical carcinoma
     Route: 048
     Dates: start: 20230412

REACTIONS (5)
  - Pneumonia [Unknown]
  - Abdominal discomfort [Not Recovered/Not Resolved]
  - Headache [Not Recovered/Not Resolved]
  - Asthenia [Not Recovered/Not Resolved]
  - Fatigue [Unknown]

NARRATIVE: CASE EVENT DATE: 20230401
